FAERS Safety Report 8889717 (Version 3)
Quarter: 2013Q3

REPORT INFORMATION
  Report Type: Spontaneous
  Country: US (occurrence: US)
  Receive Date: 20121107
  Receipt Date: 20130806
  Transmission Date: 20140515
  Serious: Yes (Other)
  Sender: FDA-Public Use
  Company Number: US-MERCK-1210USA012424

PATIENT
  Sex: Female
  Weight: 56.24 kg

DRUGS (5)
  1. FOSAMAX [Suspect]
     Indication: OSTEOPOROSIS
     Dosage: 5 MG, UNK
     Route: 048
     Dates: end: 2005
  2. FOSAMAX [Suspect]
     Dosage: 10 MG, UNK
     Route: 048
     Dates: end: 2005
  3. ALENDRONATE SODIUM [Suspect]
     Indication: OSTEOPOROSIS
     Dosage: 5 MG, QD
     Route: 048
     Dates: end: 2005
  4. ALENDRONATE SODIUM [Suspect]
     Dosage: 10 MG, QD
     Route: 048
     Dates: end: 2005
  5. ALEVE [Concomitant]
     Indication: INTERVERTEBRAL DISC DEGENERATION

REACTIONS (28)
  - Femur fracture [Recovering/Resolving]
  - Open reduction of fracture [Unknown]
  - Femur fracture [Unknown]
  - Neoplasm malignant [Unknown]
  - Fall [Unknown]
  - Low turnover osteopathy [Unknown]
  - Limb operation [Unknown]
  - Thoracic vertebral fracture [Recovering/Resolving]
  - Carpal tunnel syndrome [Unknown]
  - Hysterectomy [Unknown]
  - Bladder repair [Unknown]
  - Bursitis [Unknown]
  - Tendonitis [Unknown]
  - Lumbar radiculopathy [Unknown]
  - Intervertebral disc disorder [Unknown]
  - Spondylolisthesis [Unknown]
  - Perineurial cyst [Unknown]
  - Hypercholesterolaemia [Unknown]
  - Heart rate irregular [Unknown]
  - Intervertebral disc degeneration [Unknown]
  - Intervertebral disc protrusion [Unknown]
  - Cervical radiculopathy [Unknown]
  - Spinal column stenosis [Unknown]
  - Drug ineffective [Unknown]
  - Back pain [Unknown]
  - Arthralgia [Unknown]
  - Gastrooesophageal reflux disease [Unknown]
  - Drug ineffective [Unknown]
